FAERS Safety Report 6520746-9 (Version None)
Quarter: 2009Q4

REPORT INFORMATION
  Report Type: 
  Country: None (occurrence: None)
  Receive Date: 20091229
  Receipt Date: 20091223
  Transmission Date: 20100525
  Serious: Yes (Hospitalization)
  Sender: FDA-Public Use
  Company Number: GXKR2009GB13804

PATIENT
  Age: 68 Year
  Sex: Female
  Weight: 69.9 kg

DRUGS (10)
  1. MIRTAZAPINE [Suspect]
     Indication: ANXIETY
     Dosage: 30 MG
     Route: 048
     Dates: start: 20091205, end: 20091209
  2. ANASTROZOLE [Concomitant]
     Dosage: 1 MG, QD
  3. CITALOPRAM HYDROBROMIDE [Concomitant]
  4. DIAZEPAM [Concomitant]
     Dosage: 2 MG, TID
  5. INFLUENZA VIRUS VACCINE [Concomitant]
  6. LEVOTHYROXINE SODIUM [Concomitant]
     Dosage: 75 MG, QD
  7. PROPRANOLOL [Concomitant]
     Dosage: 80 MG, QD
  8. TRIFLUOPERAZINE [Concomitant]
     Dosage: 1 MG, TID
  9. VITAMIN B COMPLEX CAP [Concomitant]
  10. WARFARIN SODIUM [Concomitant]

REACTIONS (3)
  - DIZZINESS [None]
  - HYPOKALAEMIA [None]
  - VISION BLURRED [None]
